FAERS Safety Report 4623305-8 (Version None)
Quarter: 2005Q1

REPORT INFORMATION
  Report Type: 
  Country: None (occurrence: None)
  Receive Date: 20050317
  Receipt Date: 20050311
  Transmission Date: 20050727
  Serious: Yes (Hospitalization)
  Sender: FDA-Public Use
  Company Number: 200510264BVD

PATIENT

DRUGS (4)
  1. GAMUNEX [Suspect]
     Indication: IMMUNODEFICIENCY
     Dosage: SEE IMAGE
     Route: 042
     Dates: start: 20041228
  2. GAMUNEX [Suspect]
     Indication: IMMUNODEFICIENCY
     Dosage: SEE IMAGE
     Route: 042
     Dates: start: 20050201
  3. GAMUNEX [Suspect]
     Indication: IMMUNODEFICIENCY
     Dosage: SEE IMAGE
     Route: 042
     Dates: start: 20050308
  4. GAMIMUNE N 5% [Concomitant]

REACTIONS (2)
  - BLOOD IMMUNOGLOBULIN G DECREASED [None]
  - RESPIRATORY TRACT INFECTION VIRAL [None]
